FAERS Safety Report 13111217 (Version 2)
Quarter: 2017Q1

REPORT INFORMATION
  Report Type: Spontaneous
  Country: GB (occurrence: IN)
  Receive Date: 20170112
  Receipt Date: 20170203
  Transmission Date: 20170428
  Serious: Yes (Death)
  Sender: FDA-Public Use
  Company Number: PHHY2017IN002666

PATIENT
  Age: 30 Year
  Sex: Female

DRUGS (1)
  1. DICLOFENAC SODIUM. [Suspect]
     Active Substance: DICLOFENAC SODIUM
     Indication: ABDOMINAL PAIN LOWER
     Dosage: UNK
     Route: 030
     Dates: start: 20160804

REACTIONS (5)
  - Heart rate decreased [Fatal]
  - Contraindicated product administered [Unknown]
  - Asphyxia [Fatal]
  - Anaphylactic shock [Fatal]
  - Aspiration [Fatal]

NARRATIVE: CASE EVENT DATE: 20160804
